FAERS Safety Report 4908127-2 (Version None)
Quarter: 2006Q1

REPORT INFORMATION
  Report Type: 
  Country: None (occurrence: None)
  Receive Date: 20060210
  Receipt Date: 20060131
  Transmission Date: 20060701
  Serious: Yes (Hospitalization)
  Sender: FDA-Public Use
  Company Number: JP-JNJFOC-20060200881

PATIENT
  Sex: Female
  Weight: 3.12 kg

DRUGS (7)
  1. RISPERDAL [Suspect]
     Indication: SCHIZOPHRENIA
  2. LUVOX [Suspect]
     Indication: SCHIZOPHRENIA
  3. ARTANE [Suspect]
     Indication: SCHIZOPHRENIA
  4. CLONAZEPAM [Suspect]
     Indication: SCHIZOPHRENIA
  5. SEROQUEL [Suspect]
     Indication: SCHIZOPHRENIA
  6. HIBERNA [Suspect]
     Indication: SCHIZOPHRENIA
  7. SILECE [Suspect]
     Indication: SCHIZOPHRENIA

REACTIONS (8)
  - DRUG WITHDRAWAL SYNDROME NEONATAL [None]
  - EYE MOVEMENT DISORDER [None]
  - HYPOTONIA [None]
  - IRRITABILITY [None]
  - LIVER FUNCTION TEST ABNORMAL [None]
  - PYREXIA [None]
  - SOMNOLENCE [None]
  - TREMOR [None]
